FAERS Safety Report 17054642 (Version 3)
Quarter: 2019Q4

REPORT INFORMATION
  Report Type: Spontaneous
  Country: CN (occurrence: CN)
  Receive Date: 20191120
  Receipt Date: 20191226
  Transmission Date: 20200122
  Serious: Yes (Other)
  Sender: FDA-Public Use
  Company Number: CN-JNJFOC-20191115825

PATIENT
  Sex: Male

DRUGS (1)
  1. STELARA [Suspect]
     Active Substance: USTEKINUMAB
     Indication: PSORIASIS
     Route: 058
     Dates: start: 20190524

REACTIONS (4)
  - Psoriasis [Unknown]
  - Counterfeit product administered [Unknown]
  - Suicidal ideation [Unknown]
  - Emotional distress [Unknown]

NARRATIVE: CASE EVENT DATE: 2019
